FAERS Safety Report 4865501-0 (Version None)
Quarter: 2005Q4

REPORT INFORMATION
  Report Type: 
  Country: None (occurrence: None)
  Receive Date: 20051223
  Receipt Date: 20041104
  Transmission Date: 20060501
  Serious: Yes (Disabling)
  Sender: FDA-Public Use
  Company Number: US-ROCHE-385761

PATIENT
  Age: 20 Year
  Sex: Male
  Weight: 78 kg

DRUGS (6)
  1. ACCUTANE [Suspect]
     Route: 048
     Dates: start: 20000816, end: 20010906
  2. ACCUTANE [Suspect]
     Route: 048
     Dates: start: 20010906
  3. ACCUTANE [Suspect]
     Route: 048
     Dates: end: 20011115
  4. KEFLEX [Concomitant]
     Dates: start: 20010111
  5. TAC 3 [Concomitant]
     Dates: start: 20010208
  6. MONODOX [Concomitant]
     Dosage: PATIENT GIVEN TWO MONTHS THERAPY.
     Dates: start: 19961215, end: 19970215

REACTIONS (36)
  - ANAEMIA [None]
  - ANAL FISSURE [None]
  - ANXIETY [None]
  - ARTHRALGIA [None]
  - BARRETT'S OESOPHAGUS [None]
  - CANDIDIASIS [None]
  - CHEST DISCOMFORT [None]
  - COLITIS [None]
  - COLITIS ULCERATIVE [None]
  - COLON INJURY [None]
  - CONCUSSION [None]
  - CONSTIPATION [None]
  - CROHN'S DISEASE [None]
  - DEPRESSION [None]
  - DIZZINESS [None]
  - DRY SKIN [None]
  - EPIDIDYMITIS [None]
  - FATIGUE [None]
  - GASTRIC HAEMORRHAGE [None]
  - GASTRODUODENITIS [None]
  - GASTROINTESTINAL DISORDER [None]
  - GASTROOESOPHAGEAL REFLUX DISEASE [None]
  - HEAD INJURY [None]
  - HYPERVENTILATION [None]
  - INFLAMMATORY BOWEL DISEASE [None]
  - INTESTINAL HAEMORRHAGE [None]
  - IRRITABLE BOWEL SYNDROME [None]
  - MOUTH ULCERATION [None]
  - OEDEMA PERIPHERAL [None]
  - PROCTITIS ULCERATIVE [None]
  - RECTAL HAEMORRHAGE [None]
  - SEBORRHOEIC DERMATITIS [None]
  - SKIN LACERATION [None]
  - TESTICULAR PAIN [None]
  - THALASSAEMIA [None]
  - VISUAL DISTURBANCE [None]
